FAERS Safety Report 5383664-8 (Version None)
Quarter: 2007Q3

REPORT INFORMATION
  Report Type: 
  Country: None (occurrence: None)
  Receive Date: 20070706
  Receipt Date: 20070625
  Transmission Date: 20080115
  Serious: Yes (Hospitalization)
  Sender: FDA-Public Use
  Company Number: 2007-01354

PATIENT
  Age: 70 Year
  Sex: Male
  Weight: 88 kg

DRUGS (16)
  1. VELCADE [Suspect]
     Indication: MANTLE CELL LYMPHOMA
     Dosage: 1.30 MG/M2, IV BOLUS
     Route: 040
     Dates: start: 20061219, end: 20070220
  2. RITUXAN [Suspect]
     Indication: MANTLE CELL LYMPHOMA
     Dosage: 750.00 MG, INTRAVENOUS
     Route: 042
     Dates: end: 20070220
  3. ANZEMET [Concomitant]
  4. ACETAMINOPHEN [Concomitant]
  5. BENADRYL [Concomitant]
  6. LISINOPRIL [Concomitant]
  7. LASIX [Concomitant]
  8. GLUCOVANCE [Concomitant]
  9. HYTRIN [Concomitant]
  10. LORTAB [Concomitant]
  11. ZESTRIL [Concomitant]
  12. TERAZOSIN HCL [Concomitant]
  13. LORAZEPAM [Concomitant]
  14. MAGNESIUM CITRATE (MAGNESIUM CITRATE) [Concomitant]
  15. COLACE (DOCUSATE SODIUM) [Concomitant]
  16. SENOKOT [Concomitant]

REACTIONS (10)
  - ABDOMINAL PAIN [None]
  - ASPIRATION PLEURAL CAVITY ABNORMAL [None]
  - BALANCE DISORDER [None]
  - HEART RATE DECREASED [None]
  - HYPERSENSITIVITY [None]
  - HYPOTENSION [None]
  - NAUSEA [None]
  - OXYGEN SATURATION DECREASED [None]
  - PLEURAL EFFUSION [None]
  - SKIN DISCOLOURATION [None]
